FAERS Safety Report 23159174 (Version 2)
Quarter: 2023Q4

REPORT INFORMATION
  Report Type: Spontaneous
  Country: US (occurrence: US)
  Receive Date: 20231108
  Receipt Date: 20231220
  Transmission Date: 20240110
  Serious: No
  Sender: FDA-Public Use
  Company Number: US-BAYER-2023A154489

PATIENT
  Age: 11 Year
  Sex: Male

DRUGS (1)
  1. KOVALTRY [Suspect]
     Active Substance: ANTIHEMOPHILIC FACTOR, HUMAN RECOMBINANT
     Indication: Haemorrhage
     Dosage: INFUSE 1000 UNITS (+/-10%),  AS NEEDED FOR

REACTIONS (2)
  - Malaise [None]
  - Pyrexia [None]

NARRATIVE: CASE EVENT DATE: 20231027
